FAERS Safety Report 8140964-6 (Version None)
Quarter: 2012Q1

REPORT INFORMATION
  Report Type: 
  Country: None (occurrence: None)
  Receive Date: 20120216
  Receipt Date: 20120201
  Transmission Date: 20120608
  Serious: Yes (Hospitalization)
  Sender: FDA-Public Use
  Company Number: PHHO2012TW001185

PATIENT
  Sex: Female
  Weight: 56.2 kg

DRUGS (10)
  1. BLINDED NO TREATMENT RECEIVED [Suspect]
     Indication: CARDIAC FAILURE
     Dosage: CODE NOT BROKEN
     Dates: start: 20100705, end: 20111213
  2. BLINDED ALISKIREN [Suspect]
     Indication: CARDIAC FAILURE
     Dosage: CODE NOT BROKEN
     Dates: start: 20100705, end: 20111213
  3. ENALAPRIL MALEATE [Suspect]
     Indication: CARDIAC FAILURE
     Dosage: CODE NOT BROKEN
     Dates: start: 20100705, end: 20111213
  4. POTASSIUM CHLORIDE [Concomitant]
     Indication: HYPOKALAEMIA
     Dosage: 600 MG, QID
     Route: 048
     Dates: start: 20120108, end: 20120114
  5. SPIRONOLACTONE [Concomitant]
     Dosage: 25 MG, QD
     Route: 048
     Dates: start: 20111207, end: 20120114
  6. SENNOSIDE [Concomitant]
     Indication: CONSTIPATION
     Dosage: 40 MG, HS
     Route: 048
     Dates: start: 20120103
  7. CARVEDILOL [Concomitant]
     Dosage: 6.25 MG, QD
     Route: 048
     Dates: start: 20120109, end: 20120114
  8. RAMIPRIL [Suspect]
     Dosage: 1.25 MG, QD
     Route: 048
     Dates: start: 20120109, end: 20120114
  9. PROPYLTHIOURACIL [Concomitant]
     Indication: HYPERTHYROIDISM
     Dosage: 100 MG, TID
     Route: 048
     Dates: start: 20111221
  10. FUROSEMIDE [Suspect]
     Dosage: 1.25 MG, QD
     Route: 048
     Dates: start: 20111207, end: 20120114

REACTIONS (3)
  - HYPOTENSION [None]
  - HYPONATRAEMIA [None]
  - RENAL IMPAIRMENT [None]
